FAERS Safety Report 13159110 (Version 2)
Quarter: 2017Q1

REPORT INFORMATION
  Report Type: Spontaneous
  Country: US (occurrence: US)
  Receive Date: 20170127
  Receipt Date: 20170201
  Transmission Date: 20170428
  Serious: No
  Sender: FDA-Public Use
  Company Number: US-GLAXOSMITHKLINE-US2017GSK010485

PATIENT
  Sex: Male

DRUGS (7)
  1. LEXAPRO [Suspect]
     Active Substance: ESCITALOPRAM OXALATE
     Dosage: 20 MG, UNK
     Dates: start: 200907
  2. LEXAPRO [Suspect]
     Active Substance: ESCITALOPRAM OXALATE
     Indication: DEPRESSION
     Dosage: 10 MG, UNK
     Dates: start: 200902, end: 200903
  3. LEXAPRO [Suspect]
     Active Substance: ESCITALOPRAM OXALATE
     Dosage: 20 MG, UNK
     Dates: start: 200903, end: 200906
  4. LEXAPRO [Suspect]
     Active Substance: ESCITALOPRAM OXALATE
     Dosage: 30 MG, UNK
     Dates: start: 200906, end: 200907
  5. WELLBUTRIN [Suspect]
     Active Substance: BUPROPION HYDROCHLORIDE
     Dosage: UNK
     Dates: start: 200907
  6. WELLBUTRIN [Suspect]
     Active Substance: BUPROPION HYDROCHLORIDE
     Indication: DEPRESSION
     Dosage: UNK
     Dates: start: 200904, end: 200905
  7. CHANTIX [Suspect]
     Active Substance: VARENICLINE TARTRATE
     Indication: SMOKING CESSATION THERAPY
     Dosage: UNK
     Dates: start: 200806

REACTIONS (13)
  - Bradyphrenia [Unknown]
  - Impaired work ability [Unknown]
  - Social avoidant behaviour [Unknown]
  - Memory impairment [Unknown]
  - Feelings of worthlessness [Unknown]
  - Irritability [Unknown]
  - Disturbance in attention [Unknown]
  - Decreased interest [Unknown]
  - Performance status decreased [Unknown]
  - Distractibility [Unknown]
  - Social fear [Unknown]
  - Depressive symptom [Unknown]
  - Anxiety [Unknown]
